FAERS Safety Report 13714510 (Version 2)
Quarter: 2017Q3

REPORT INFORMATION
  Report Type: Report from Study
  Country: CR (occurrence: CR)
  Receive Date: 20170704
  Receipt Date: 20170709
  Transmission Date: 20171127
  Serious: Yes (Life-Threatening, Other)
  Sender: FDA-Public Use
  Company Number: PHHY2017CR097139

PATIENT
  Age: 69 Year
  Sex: Female
  Weight: 86 kg

DRUGS (3)
  1. NEBILET [Concomitant]
     Active Substance: NEBIVOLOL
     Indication: HYPERTENSION
     Dosage: 1 DF, QD
     Route: 048
  2. EXFORGE [Suspect]
     Active Substance: AMLODIPINE BESYLATE\VALSARTAN
     Indication: HYPERTENSION
     Dosage: 1 DF, QD ((AMLODIPINE 10 MG, VALSARTAN 320 MG)) IN THE MORNING
     Route: 048
  3. RADIOACTIVE IODINE SOLUTION [Suspect]
     Active Substance: SODIUM IODIDE I-131
     Indication: UTERINE CANCER
     Route: 065

REACTIONS (13)
  - Coma [Unknown]
  - Uterine cancer [Recovered/Resolved]
  - Depression [Unknown]
  - Myocardial ischaemia [Unknown]
  - Limb injury [Recovered/Resolved]
  - Accident [Unknown]
  - Skin discolouration [Recovered/Resolved]
  - Pain in extremity [Recovered/Resolved]
  - Myocardial infarction [Unknown]
  - Anaphylactic shock [Unknown]
  - Colitis [Recovering/Resolving]
  - Gastritis [Recovering/Resolving]
  - Varicose vein [Unknown]
